FAERS Safety Report 8002166-3 (Version None)
Quarter: 2011Q4

REPORT INFORMATION
  Report Type: 
  Country: None (occurrence: None)
  Receive Date: 20111222
  Receipt Date: 20111219
  Transmission Date: 20120403
  Serious: Yes (Hospitalization, Other)
  Sender: FDA-Public Use
  Company Number: US-PFIZER INC-2011118892

PATIENT
  Sex: Female

DRUGS (10)
  1. METOPROLOL TARTRATE [Concomitant]
     Dosage: UNK
     Dates: end: 20110802
  2. COREG [Concomitant]
     Dosage: UNK
     Dates: start: 20110804
  3. ADRIAMYCIN PFS [Suspect]
     Indication: BREAST CANCER
     Dosage: 118 MG, UNK
     Route: 042
     Dates: start: 20101116, end: 20110125
  4. CYTOXAN [Suspect]
     Indication: BREAST CANCER
     Dosage: 1194 MG, UNK
     Route: 042
     Dates: start: 20101116, end: 20110125
  5. ZOFRAN [Concomitant]
     Dosage: UNK
     Dates: start: 20101029
  6. TAXOL [Suspect]
     Indication: BREAST CANCER
     Dosage: 158 MG, UNK
     Route: 042
     Dates: start: 20110215
  7. LASIX [Concomitant]
     Dosage: UNK
     Dates: start: 20110804, end: 20110807
  8. BISOPROLOL [Concomitant]
  9. ACETYLSALICYLIC ACID [Concomitant]
  10. BISOPROLOL FUMARATE [Concomitant]

REACTIONS (6)
  - ATRIAL FIBRILLATION [None]
  - DEEP VEIN THROMBOSIS [None]
  - DYSPNOEA [None]
  - LEFT VENTRICULAR DYSFUNCTION [None]
  - LUNG INFILTRATION [None]
  - CONGESTIVE CARDIOMYOPATHY [None]
